FAERS Safety Report 16717052 (Version 2)
Quarter: 2020Q3

REPORT INFORMATION
  Report Type: Spontaneous
  Country: US (occurrence: US)
  Receive Date: 20190819
  Receipt Date: 20200828
  Transmission Date: 20201102
  Serious: Yes (Other)
  Sender: FDA-Public Use
  Company Number: US-ELI_LILLY_AND_COMPANY-US201908004044

PATIENT
  Age: 56 Year
  Sex: Male
  Weight: 99.77 kg

DRUGS (4)
  1. CIALIS [Suspect]
     Active Substance: TADALAFIL
     Indication: CARDIOVASCULAR DISORDER
     Dosage: 20 MG, UNKNOWN
     Route: 048
     Dates: start: 2017
  2. CIALIS [Suspect]
     Active Substance: TADALAFIL
     Dosage: 20 MG, UNKNOWN
     Route: 048
     Dates: start: 201912
  3. MORPHINE [Concomitant]
     Active Substance: MORPHINE
     Indication: PRODUCT USED FOR UNKNOWN INDICATION
     Dosage: UNK, PRN
  4. LORTAB [LORATADINE] [Concomitant]
     Active Substance: LORATADINE
     Indication: PRODUCT USED FOR UNKNOWN INDICATION
     Dosage: 10 MG, PRN

REACTIONS (7)
  - Oesophageal disorder [Unknown]
  - Exostosis [Unknown]
  - Throat cancer [Unknown]
  - Weight increased [Unknown]
  - Off label use [Unknown]
  - Vascular injury [Unknown]
  - Dysphagia [Unknown]

NARRATIVE: CASE EVENT DATE: 201906
